FAERS Safety Report 4445081-4 (Version None)
Quarter: 2004Q3

REPORT INFORMATION
  Report Type: 
  Country: None (occurrence: None)
  Receive Date: 20040903
  Receipt Date: 20040827
  Transmission Date: 20050211
  Serious: Yes (Hospitalization)
  Sender: FDA-Public Use
  Company Number: 208292

PATIENT
  Age: 14 Year
  Sex: Male
  Weight: 124.7 kg

DRUGS (1)
  1. XOLAIR [Suspect]
     Indication: ASTHMA
     Dosage: 225 MG, Q2W, SUBCUTANEOUS
     Route: 058
     Dates: start: 20031001

REACTIONS (6)
  - FLANK PAIN [None]
  - INDURATION [None]
  - METHICILLIN-RESISTANT STAPHYLOCOCCAL AUREUS TEST POSITIVE [None]
  - NECROSIS [None]
  - POST PROCEDURAL PAIN [None]
  - SUBCUTANEOUS ABSCESS [None]
